FAERS Safety Report 7255729-7 (Version None)
Quarter: 2011Q1

REPORT INFORMATION
  Report Type: 
  Country: None (occurrence: None)
  Receive Date: 20110129
  Receipt Date: 20100824
  Transmission Date: 20110831
  Serious: No
  Sender: FDA-Public Use
  Company Number: US-ABBOTT-10P-163-0667097-00

PATIENT
  Sex: Female
  Weight: 70.824 kg

DRUGS (7)
  1. HUMIRA [Suspect]
     Indication: COLITIS ULCERATIVE
     Dates: start: 20100323, end: 20100701
  2. DIPENTUM [Concomitant]
     Indication: PRODUCT USED FOR UNKNOWN INDICATION
     Dosage: 250 MG 3 CAPS DAILY
  3. DEPAKOTE [Concomitant]
     Indication: BIPOLAR I DISORDER
  4. SYNTHROID [Concomitant]
     Indication: PRODUCT USED FOR UNKNOWN INDICATION
  5. HUMIRA [Suspect]
     Indication: ARTHRITIS
     Dates: start: 20100701, end: 20100701
  6. PREDNISONE [Concomitant]
     Indication: PRODUCT USED FOR UNKNOWN INDICATION
  7. TRILEPTAL [Concomitant]
     Indication: BIPOLAR I DISORDER

REACTIONS (6)
  - RASH [None]
  - SYSTEMIC LUPUS ERYTHEMATOSUS [None]
  - ERYTHEMA [None]
  - SWELLING [None]
  - UPPER RESPIRATORY TRACT INFECTION [None]
  - HYPERAESTHESIA [None]
